FAERS Safety Report 25963262 (Version 3)
Quarter: 2025Q4

REPORT INFORMATION
  Report Type: Report from Study
  Country: US (occurrence: US)
  Receive Date: 20251027
  Receipt Date: 20251210
  Transmission Date: 20260117
  Serious: Yes (Other)
  Sender: AIMMUNE
  Company Number: US-ZENPEP LLC-2025AIMT01101

PATIENT

DRUGS (2)
  1. ZENPEP [Suspect]
     Active Substance: PANCRELIPASE AMYLASE\PANCRELIPASE LIPASE\PANCRELIPASE PROTEASE
     Indication: Pancreatic failure
     Dosage: 5000 UPS 100 CT CAPSULES
     Route: 048
     Dates: start: 2023
  2. ZENPEP [Suspect]
     Active Substance: PANCRELIPASE AMYLASE\PANCRELIPASE LIPASE\PANCRELIPASE PROTEASE
     Dosage: 5000 UPS, ONCE, LAST DOSE PRIOR TO EVENTS
     Route: 048

REACTIONS (4)
  - Pancreatitis [Unknown]
  - Chronic kidney disease [Unknown]
  - Metabolic acidosis [Unknown]
  - Psoriasis [Unknown]
